FAERS Safety Report 6538967-8 (Version None)
Quarter: 2010Q1

REPORT INFORMATION
  Report Type: 
  Country: None (occurrence: None)
  Receive Date: 20100112
  Receipt Date: 20091228
  Transmission Date: 20100710
  Serious: Yes (Disabling)
  Sender: FDA-Public Use
  Company Number: DSJ-2009-15415

PATIENT
  Age: 68 Year
  Sex: Female

DRUGS (6)
  1. OLMETEC          (OLMESARTAN MEDOXOMIL) [Suspect]
     Indication: HYPERTENSION
     Dosage: 10 MG (10 MG, 1 IN 1 D), PER ORAL
     Route: 048
     Dates: start: 20070717, end: 20091125
  2. CALBLOCK (AZELNIDIPINE) (TABLET) (AZELNIDIPINE) [Suspect]
     Indication: HYPERTENSION
     Dosage: 16 MG (16 MG, 1 IN 1 D), PER ORAL
     Route: 048
     Dates: start: 20070717, end: 20091225
  3. LIVALO [Suspect]
     Indication: HYPERLIPIDAEMIA
     Dosage: 1 MG (1 MG, 1 IN 1 D), PER ORAL
     Route: 048
     Dates: start: 20090629, end: 20091118
  4. METHYCOBAL (MECOBALAMIN) (TABLET) (MECOBALAMIN) [Suspect]
     Indication: LACUNAR INFARCTION
     Dosage: 1500 MG (500 MG, 3 IN 1 D), PER ORAL
     Route: 048
     Dates: start: 20091118, end: 20091225
  5. ACETYLSALICYLIC ACID SRT [Concomitant]
  6. LIPITOR [Concomitant]

REACTIONS (2)
  - LACUNAR INFARCTION [None]
  - WHITE BLOOD CELL COUNT DECREASED [None]
